FAERS Safety Report 4548517-3 (Version None)
Quarter: 2005Q1

REPORT INFORMATION
  Report Type: 
  Country: None (occurrence: None)
  Receive Date: 20050110
  Receipt Date: 20041228
  Transmission Date: 20050727
  Serious: Yes (Hospitalization)
  Sender: FDA-Public Use
  Company Number: CH-GLAXOSMITHKLINE-B0363435A

PATIENT
  Age: 62 Year
  Sex: Female

DRUGS (5)
  1. ZIAGEN [Suspect]
     Indication: ASYMPTOMATIC HIV INFECTION
     Dosage: 600MG PER DAY
     Route: 048
     Dates: start: 20040910, end: 20041203
  2. BACTRIM DS [Suspect]
     Indication: PNEUMOCYSTIS JIROVECI PNEUMONIA
     Route: 048
     Dates: start: 20040801, end: 20041203
  3. VIREAD [Suspect]
     Indication: ASYMPTOMATIC HIV INFECTION
     Dosage: 245MG PER DAY
     Route: 048
     Dates: start: 20040801, end: 20041203
  4. REYATAZ [Concomitant]
     Indication: ASYMPTOMATIC HIV INFECTION
     Dosage: 400MG PER DAY
     Route: 048
     Dates: start: 20041025, end: 20041203
  5. RISPERDAL [Concomitant]
     Indication: PSYCHOTIC DISORDER
     Dosage: 2MG TWICE PER DAY
     Route: 048
     Dates: start: 20040801, end: 20041203

REACTIONS (11)
  - ANAEMIA MACROCYTIC [None]
  - ASTHENIA [None]
  - BLOOD BILIRUBIN INCREASED [None]
  - BLOOD LACTATE DEHYDROGENASE INCREASED [None]
  - DRUG TOXICITY [None]
  - EXTRAVASCULAR HAEMOLYSIS [None]
  - HAEMOGLOBIN DECREASED [None]
  - NAUSEA [None]
  - NEUTROPHIL COUNT DECREASED [None]
  - PANCYTOPENIA [None]
  - PLATELET COUNT DECREASED [None]
